FAERS Safety Report 7655974-2 (Version None)
Quarter: 2011Q3

REPORT INFORMATION
  Report Type: 
  Country: None (occurrence: None)
  Receive Date: 20110801
  Receipt Date: 20110718
  Transmission Date: 20111222
  Serious: No
  Sender: FDA-Public Use
  Company Number: TPA2011A03806

PATIENT
  Age: 82 Year
  Sex: Female

DRUGS (5)
  1. NORSPAN [Concomitant]
  2. RANTUDIL (ACEMETACIN) [Concomitant]
  3. FUROSEMIDE [Concomitant]
  4. ADENURIC (FEBUXOSTAT) [Suspect]
     Indication: HYPERURICAEMIA
     Dosage: 80 MG (80 MG, 1 IN 1 D)
     Route: 048
     Dates: start: 20110616, end: 20110623
  5. DELIX PLUS (HYDOCHLOROTHIAZIDE, RAMIPRIL) [Concomitant]

REACTIONS (2)
  - ARRHYTHMIA [None]
  - CIRCULATORY COLLAPSE [None]
